FAERS Safety Report 9094938 (Version 3)
Quarter: 2013Q3

REPORT INFORMATION
  Report Type: Spontaneous
  Country: US (occurrence: US)
  Receive Date: 20130220
  Receipt Date: 20130812
  Transmission Date: 20140515
  Serious: Yes (Hospitalization)
  Sender: FDA-Public Use
  Company Number: US-BIOGENIDEC-2013BI014637

PATIENT
  Age: 62 Year
  Sex: Female

DRUGS (1)
  1. TYSABRI [Suspect]
     Indication: MULTIPLE SCLEROSIS
     Route: 042
     Dates: start: 20100913

REACTIONS (4)
  - Fall [Recovered/Resolved]
  - Splenic rupture [Recovered/Resolved]
  - Haemorrhage [Recovered/Resolved]
  - Abdominal pain [Recovered/Resolved]
